FAERS Safety Report 21310493 (Version 2)
Quarter: 2022Q3

REPORT INFORMATION
  Report Type: Spontaneous
  Country: DE (occurrence: DE)
  Receive Date: 20220909
  Receipt Date: 20220922
  Transmission Date: 20221026
  Serious: Yes (Hospitalization)
  Sender: FDA-Public Use
  Company Number: DE-ALKEM LABORATORIES LIMITED-DE-ALKEM-2022-09174

PATIENT
  Sex: Male

DRUGS (4)
  1. IBUPROFEN [Suspect]
     Active Substance: IBUPROFEN
     Indication: Psoriatic arthropathy
     Dosage: 1200 MILLIGRAM
     Route: 065
     Dates: start: 20180924, end: 20180926
  2. IBUPROFEN [Suspect]
     Active Substance: IBUPROFEN
     Indication: Spondylitis
     Dosage: 600 MILLIGRAM
     Route: 065
     Dates: start: 20191105
  3. LEFLUNOMIDE [Suspect]
     Active Substance: LEFLUNOMIDE
     Indication: Psoriatic arthropathy
     Dosage: 20 MILLIGRAM
     Route: 065
     Dates: start: 20180426
  4. LEFLUNOMIDE [Suspect]
     Active Substance: LEFLUNOMIDE
     Indication: Spondylitis
     Dosage: 10 MILLIGRAM
     Route: 065
     Dates: start: 20180426

REACTIONS (3)
  - Hypercapnia [Unknown]
  - Osteoarthritis [Unknown]
  - Nasopharyngitis [Unknown]

NARRATIVE: CASE EVENT DATE: 20181206
